FAERS Safety Report 6613136-1 (Version None)
Quarter: 2010Q1

REPORT INFORMATION
  Report Type: 
  Country: None (occurrence: None)
  Receive Date: 20100225
  Receipt Date: 20100218
  Transmission Date: 20100710
  Serious: Yes (Hospitalization)
  Sender: FDA-Public Use
  Company Number: 2010SP000155

PATIENT
  Age: 17 Year
  Sex: Male
  Weight: 262 kg

DRUGS (4)
  1. CICLESONIDE HFA [Suspect]
     Indication: RHINITIS PERENNIAL
     Dosage: 80 UG; 80 UG
     Dates: start: 20091012, end: 20100114
  2. CICLESONIDE HFA [Suspect]
     Indication: RHINITIS PERENNIAL
     Dosage: 80 UG; 80 UG
     Dates: start: 20100116
  3. CON MEDS [Concomitant]
  4. PREV MEDS [Concomitant]

REACTIONS (1)
  - APPENDICITIS [None]
